FAERS Safety Report 25480134 (Version 2)
Quarter: 2025Q3

REPORT INFORMATION
  Report Type: Spontaneous
  Country: CA (occurrence: CA)
  Receive Date: 20250625
  Receipt Date: 20250703
  Transmission Date: 20251020
  Serious: Yes (Hospitalization)
  Sender: SANDOZ
  Company Number: CA-002147023-PHHY2016CA181615

PATIENT
  Age: 59 Year
  Sex: Male

DRUGS (31)
  1. AMOXICILLIN [Suspect]
     Active Substance: AMOXICILLIN
     Indication: Product used for unknown indication
     Route: 065
  2. ASPIRIN [Suspect]
     Active Substance: ASPIRIN
     Indication: Product used for unknown indication
     Route: 065
  3. CEFUROXIME AXETIL [Suspect]
     Active Substance: CEFUROXIME AXETIL
     Indication: Product used for unknown indication
     Route: 065
  4. IBUPROFEN [Suspect]
     Active Substance: IBUPROFEN
     Indication: Product used for unknown indication
     Route: 065
  5. PNEUMOVAX NOS [Suspect]
     Active Substance: PNEUMOCOCCAL VACCINE POLYVALENT
     Indication: Product used for unknown indication
     Route: 065
  6. XOLAIR [Suspect]
     Active Substance: OMALIZUMAB
     Dosage: 300 MG, EVERY 4 WEEKS PRE-FILLED SYRINGE
     Route: 058
     Dates: start: 20190131
  7. XOLAIR [Suspect]
     Active Substance: OMALIZUMAB
     Dosage: 300 MG, EVERY 4 WEEKS PRE-FILLED SYRINGE
     Route: 058
     Dates: start: 20190909
  8. XOLAIR [Suspect]
     Active Substance: OMALIZUMAB
     Dosage: 300 MG, EVERY 4 WEEKS PRE-FILLED SYRINGE
     Route: 058
     Dates: start: 20191010
  9. XOLAIR [Suspect]
     Active Substance: OMALIZUMAB
     Dosage: 300 MG, EVERY 4 WEEKS, PRE-FILLED SYRINGE
     Route: 058
  10. XOLAIR [Suspect]
     Active Substance: OMALIZUMAB
     Dosage: 300 MG, EVERY 4 WEEKS PRE-FILLED SYRINGE
     Route: 058
     Dates: start: 20190718
  11. XOLAIR [Suspect]
     Active Substance: OMALIZUMAB
     Dosage: 300 MG, EVERY 4 WEEKS
     Route: 058
  12. XOLAIR [Suspect]
     Active Substance: OMALIZUMAB
     Route: 058
  13. XOLAIR [Suspect]
     Active Substance: OMALIZUMAB
     Route: 058
     Dates: start: 20170126
  14. XOLAIR [Suspect]
     Active Substance: OMALIZUMAB
     Indication: Nasal polyps
     Dosage: 300 MG, EVERY 4 WEEKS
     Route: 058
     Dates: start: 20161202
  15. XOLAIR [Suspect]
     Active Substance: OMALIZUMAB
     Route: 058
     Dates: start: 20170302
  16. XOLAIR [Suspect]
     Active Substance: OMALIZUMAB
     Route: 058
     Dates: start: 20170427
  17. XOLAIR [Suspect]
     Active Substance: OMALIZUMAB
     Route: 058
     Dates: start: 20170330
  18. XOLAIR [Suspect]
     Active Substance: OMALIZUMAB
     Route: 058
  19. XOLAIR [Suspect]
     Active Substance: OMALIZUMAB
     Indication: Asthma
     Route: 058
     Dates: start: 20180104
  20. XOLAIR [Suspect]
     Active Substance: OMALIZUMAB
     Dosage: 300 MG, EVERY 4 WEEKS PRE-FILLED SYRINGE
     Route: 058
     Dates: start: 20190228
  21. XOLAIR [Suspect]
     Active Substance: OMALIZUMAB
     Dosage: 300 MG, QMO
     Route: 058
  22. XOLAIR [Suspect]
     Active Substance: OMALIZUMAB
     Indication: Asthma
     Dosage: 300 MG, EVERY 4 WEEKS
     Route: 058
     Dates: start: 20161104
  23. XOLAIR [Suspect]
     Active Substance: OMALIZUMAB
     Indication: Chronic rhinosinusitis with nasal polyps
     Dosage: 300 MG, EVERY 4 WEEKS PRE-FILLED SYRINGE
     Route: 058
     Dates: start: 20180816
  24. XOLAIR [Suspect]
     Active Substance: OMALIZUMAB
     Dosage: 300 MG, EVERY 4 WEEKS PRE-FILLED SYRINGE
     Route: 058
     Dates: start: 20180913
  25. XOLAIR [Suspect]
     Active Substance: OMALIZUMAB
     Dosage: 300 MG, EVERY 4 WEEKS PRE-FILLED SYRINGE
     Route: 058
     Dates: start: 20181206
  26. XOLAIR [Suspect]
     Active Substance: OMALIZUMAB
     Dosage: 300 MG, EVERY 4 WEEKS PRE-FILLED SYRINGE
     Route: 058
     Dates: start: 20190328
  27. XOLAIR [Suspect]
     Active Substance: OMALIZUMAB
     Dosage: 300 MG, EVERY 4 WEEKS, PRE-FILLED SYRINGE
     Route: 058
  28. PANTOPRAZOLE [Concomitant]
     Active Substance: PANTOPRAZOLE
     Indication: Product used for unknown indication
     Route: 065
  29. ROSUVASTATIN [Concomitant]
     Active Substance: ROSUVASTATIN
     Indication: Product used for unknown indication
     Route: 048
  30. SYMBICORT [Concomitant]
     Active Substance: BUDESONIDE\FORMOTEROL FUMARATE DIHYDRATE
     Indication: Asthma
     Route: 055
     Dates: start: 201301
  31. SYMBICORT [Concomitant]
     Active Substance: BUDESONIDE\FORMOTEROL FUMARATE DIHYDRATE
     Route: 055
     Dates: start: 2013

REACTIONS (47)
  - Subdural haemorrhage [Recovered/Resolved]
  - Pain [Recovered/Resolved]
  - Headache [Recovered/Resolved]
  - Erythema [Recovered/Resolved]
  - Nasal polyps [Recovering/Resolving]
  - Ear infection [Unknown]
  - Hypoacusis [Recovering/Resolving]
  - Middle ear effusion [Recovering/Resolving]
  - Influenza [Recovered/Resolved]
  - Intervertebral disc protrusion [Unknown]
  - Myalgia [Recovered/Resolved]
  - General physical health deterioration [Recovered/Resolved]
  - Nasal discharge discolouration [Recovered/Resolved]
  - Tinnitus [Unknown]
  - Movement disorder [Unknown]
  - Myositis [Unknown]
  - Musculoskeletal pain [Unknown]
  - Nasal congestion [Recovered/Resolved]
  - Rhinorrhoea [Recovered/Resolved]
  - Nasal discharge discolouration [Recovered/Resolved]
  - Nasal discharge discolouration [Recovering/Resolving]
  - Nasal congestion [Recovering/Resolving]
  - Ear pain [Unknown]
  - Peripheral swelling [Unknown]
  - Oropharyngeal pain [Unknown]
  - Arthralgia [Unknown]
  - Sinusitis [Recovered/Resolved]
  - Sinusitis [Recovering/Resolving]
  - Fatigue [Recovered/Resolved]
  - Cough [Recovered/Resolved]
  - Hernia [Unknown]
  - Drug hypersensitivity [Unknown]
  - Pruritus [Recovered/Resolved]
  - Pyrexia [Recovered/Resolved]
  - Diarrhoea [Recovered/Resolved]
  - Discomfort [Recovering/Resolving]
  - Headache [Recovered/Resolved]
  - Drug ineffective [Unknown]
  - Hypogeusia [Unknown]
  - Hyposmia [Unknown]
  - Sleep deficit [Unknown]
  - Sleep inertia [Unknown]
  - Frustration tolerance decreased [Unknown]
  - Restlessness [Unknown]
  - Upper-airway cough syndrome [Unknown]
  - Cough [Unknown]
  - Irritability [Unknown]

NARRATIVE: CASE EVENT DATE: 20170422
